FAERS Safety Report 9255380 (Version 1)
Quarter: 2013Q1

REPORT INFORMATION
  Report Type: Spontaneous
  Country: US (occurrence: None)
  Receive Date: 20121212
  Receipt Date: 20121212
  Transmission Date: 20140127
  Serious: No
  Sender: FDA-Public Use
  Company Number: 1209USA010014

PATIENT
  Age: 58 Year
  Sex: Female
  Weight: 90.72 kg

DRUGS (6)
  1. ?PEGINTRON [Suspect]
     Dosage: 150 MICROGRAMS/0.5 ML, QW, REDIPEN, SUBCUTANEOUS
     Route: 058
  2. RIBAVIRIN [Suspect]
     Dosage: UNK
  3. ARMOUR THYROID TABLETS (THYROID) TABLET, 15MG [Concomitant]
  4. CELEXA (CITALOPRAM HYDROBROMIDE) TABLET, 10MG [Concomitant]
  5. VICTRELIS (BOCEPREVIR) CAPSULE, 200MG [Suspect]
  6. TYLENOL PM (ACETAMINOPHEN, DIPHENHYDRAMINE HYDROCHLORIDE) TABLET [Concomitant]

REACTIONS (5)
  - Dysphonia [None]
  - Ear pruritus [None]
  - Vision blurred [None]
  - Local swelling [None]
  - Headache [None]
